FAERS Safety Report 5103997-X (Version None)
Quarter: 2006Q3

REPORT INFORMATION
  Report Type: 
  Country: None (occurrence: None)
  Receive Date: 20060911
  Receipt Date: 20060825
  Transmission Date: 20061208
  Serious: Yes (Other)
  Sender: FDA-Public Use
  Company Number: RU200608005285

PATIENT
  Sex: Male

DRUGS (6)
  1. CYMBALTA [Suspect]
     Dosage: SEE IMAGE
     Route: 048
     Dates: start: 20060701, end: 20060816
  2. CYMBALTA [Suspect]
     Dosage: SEE IMAGE
     Route: 048
     Dates: start: 20060817, end: 20060823
  3. CYMBALTA [Suspect]
     Dosage: SEE IMAGE
     Route: 048
     Dates: start: 20060823, end: 20060824
  4. ACTOVEGIN 10%-NACL (BLOOD, CALF, DEPROT., LMW PORTION) [Concomitant]
  5. MAGNESIA (MAGNESIUM OXIDE) [Concomitant]
  6. HAEMODESUM (POLYVIDONE) [Concomitant]

REACTIONS (11)
  - BLOOD PRESSURE DECREASED [None]
  - DIZZINESS [None]
  - FATIGUE [None]
  - HEADACHE [None]
  - HYPERTENSION [None]
  - HYPERTHERMIA [None]
  - LEUKOCYTOSIS [None]
  - PLATELET COUNT INCREASED [None]
  - REFUSAL OF TREATMENT BY PATIENT [None]
  - VERTEBROBASILAR INSUFFICIENCY [None]
  - VERTIGO [None]
